FAERS Safety Report 8343383 (Version 2)
Quarter: 2013Q1

REPORT INFORMATION
  Report Type: Spontaneous
  Country: CA (occurrence: CA)
  Receive Date: 20120119
  Receipt Date: 20130215
  Transmission Date: 20140127
  Serious: Yes (Other)
  Sender: FDA-Public Use
  Company Number: CA-JNJFOC-20110604240

PATIENT
  Sex: Female
  Weight: 78 kg

DRUGS (4)
  1. REMICADE [Suspect]
     Indication: COLITIS ULCERATIVE
     Dosage: 100MG/VIAL
     Route: 042
     Dates: start: 20071120
  2. REMICADE [Suspect]
     Indication: COLITIS ULCERATIVE
     Dosage: 100MG/VIAL
     Route: 042
     Dates: start: 20110604
  3. BENADRYL [Concomitant]
     Indication: PREMEDICATION
     Route: 042
     Dates: start: 20110604
  4. SOLUCORTEF [Concomitant]
     Indication: PREMEDICATION
     Route: 042
     Dates: start: 20110604

REACTIONS (3)
  - Hypersensitivity [Unknown]
  - Paraesthesia [Unknown]
  - Burning sensation [Unknown]
